FAERS Safety Report 7803314-8 (Version None)
Quarter: 2011Q4

REPORT INFORMATION
  Report Type: 
  Country: None (occurrence: None)
  Receive Date: 20111007
  Receipt Date: 20110926
  Transmission Date: 20120403
  Serious: Yes (Other)
  Sender: FDA-Public Use
  Company Number: US-BAYER-2011-093481

PATIENT
  Age: 17 Year
  Sex: Male
  Weight: 122 kg

DRUGS (2)
  1. ALKA-SELTZER ORIGINAL [Suspect]
     Indication: ABDOMINAL PAIN UPPER
  2. ALKA-SELTZER ORIGINAL [Suspect]
     Indication: FLATULENCE
     Dosage: 2 DF, QD
     Route: 048
     Dates: start: 20110921, end: 20110925

REACTIONS (6)
  - EARLY SATIETY [None]
  - DEAFNESS UNILATERAL [None]
  - FATIGUE [None]
  - DIZZINESS [None]
  - TINNITUS [None]
  - YAWNING [None]
